FAERS Safety Report 11530219 (Version 2)
Quarter: 2015Q4

REPORT INFORMATION
  Report Type: Spontaneous
  Country: US (occurrence: US)
  Receive Date: 20150921
  Receipt Date: 20151202
  Transmission Date: 20160304
  Serious: Yes (Hospitalization, Other)
  Sender: FDA-Public Use
  Company Number: US-SMITH AND NEPHEW, INC-2015SMT00314

PATIENT
  Age: 89 Year
  Sex: Female

DRUGS (24)
  1. AMARYL [Concomitant]
     Active Substance: GLIMEPIRIDE
     Dosage: 2 MG, 1X/DAY
  2. COUMADIN [Concomitant]
     Active Substance: WARFARIN SODIUM
     Dosage: 2 MG, 1X/DAY
  3. LASIX [Concomitant]
     Active Substance: FUROSEMIDE
     Dosage: 80 MG, 1X/DAY
     Dates: start: 201507, end: 2015
  4. MILK OF MAGNESIA [Concomitant]
     Active Substance: MAGNESIUM HYDROXIDE
     Dosage: 400 UNK, UNK
  5. LIPITOR [Concomitant]
     Active Substance: ATORVASTATIN CALCIUM
     Dosage: 20 MG, UNK
  6. GLUCOPHAGE [Concomitant]
     Active Substance: METFORMIN HYDROCHLORIDE
     Dosage: 500 MG, UNK
  7. POTASSIUM SUPPLEMENT [Concomitant]
     Active Substance: POTASSIUM
     Dosage: 60 MG, 1X/DAY
     Dates: start: 201507, end: 2015
  8. TOPROL XL [Concomitant]
     Active Substance: METOPROLOL SUCCINATE
     Dosage: 25 MG, UNK
  9. POLYETHLENE GLYCOL [Concomitant]
     Dosage: UNK
  10. GABAPENTIN. [Concomitant]
     Active Substance: GABAPENTIN
     Dosage: 300 MG, 2X/DAY
  11. LASIX [Concomitant]
     Active Substance: FUROSEMIDE
     Dosage: 40 MG, 1X/DAY
     Dates: start: 2015
  12. POTASSIUM SUPPLEMENT [Concomitant]
     Active Substance: POTASSIUM
     Dosage: 20 UNK, 1X/DAY
     Dates: start: 2015
  13. ZYLOPRIM [Concomitant]
     Active Substance: ALLOPURINOL
     Dosage: 300 MG, UNK
  14. ULTRAM [Concomitant]
     Active Substance: TRAMADOL HYDROCHLORIDE
  15. REGRANEX [Suspect]
     Active Substance: BECAPLERMIN
     Indication: DECUBITUS ULCER
     Dosage: UNK, 1X/DAY
     Route: 061
  16. TYLENOL [Concomitant]
     Active Substance: ACETAMINOPHEN
     Dosage: 650 MG, UNK
  17. COLACE [Concomitant]
     Active Substance: DOCUSATE SODIUM
     Dosage: 100 MG, UNK
  18. LASIX [Concomitant]
     Active Substance: FUROSEMIDE
     Dosage: 20 MG, 1X/DAY
     Dates: end: 201507
  19. VITAMIN D3 [Concomitant]
     Active Substance: CHOLECALCIFEROL
     Dosage: 2000 U, UNK
     Route: 048
  20. COZAAR [Concomitant]
     Active Substance: LOSARTAN POTASSIUM
     Dosage: 50 MG, UNK
  21. POTASSIUM SUPPLEMENT [Concomitant]
     Active Substance: POTASSIUM
     Dosage: 10 UNK, 1X/DAY
     Dates: end: 201507
  22. DULCOLAX NOS [Concomitant]
     Active Substance: BISACODYL OR DOCUSATE SODIUM
     Dosage: 10 MG, UNK
     Route: 054
  23. MAG-OXIDE [Concomitant]
     Dosage: 400 MG, UNK
     Route: 048
  24. KLOR-CORN [Concomitant]

REACTIONS (20)
  - Dehydration [Unknown]
  - Blood glucose increased [Unknown]
  - Blood creatinine increased [Unknown]
  - Dyspnoea exertional [Recovering/Resolving]
  - Atrial fibrillation [Unknown]
  - Cardiac failure congestive [Unknown]
  - Tremor [Unknown]
  - Oxygen saturation decreased [Recovering/Resolving]
  - Pleural effusion [Unknown]
  - Blood alkaline phosphatase decreased [Unknown]
  - Arthropathy [Unknown]
  - Chronic kidney disease [Unknown]
  - Menopausal disorder [Unknown]
  - Hypertensive nephropathy [Unknown]
  - Aortic calcification [Unknown]
  - Electrocardiogram abnormal [Unknown]
  - Wound complication [Unknown]
  - Blood phosphorus increased [Unknown]
  - Blood urea increased [Unknown]
  - Tachycardia [Recovering/Resolving]

NARRATIVE: CASE EVENT DATE: 20150714
